FAERS Safety Report 8831216 (Version 1)
Quarter: 2012Q4

REPORT INFORMATION
  Report Type: 
  Country: ID (occurrence: ID)
  Receive Date: 20121008
  Receipt Date: 20121008
  Transmission Date: 20130627
  Serious: Yes (Other)
  Sender: FDA-Public Use
  Company Number: ID-ASTELLAS-2012JP009146

PATIENT
  Age: 67 Year
  Sex: Female

DRUGS (3)
  1. PROGRAF [Suspect]
     Indication: LIVER TRANSPLANT
     Dosage: 4 mg, Unknown/D
     Route: 048
     Dates: start: 20120225
  2. URDAFALK [Concomitant]
     Dosage: UNK
     Route: 065
  3. HP PRO [Concomitant]
     Dosage: UNK
     Route: 065

REACTIONS (1)
  - Bile duct obstruction [Unknown]
